FAERS Safety Report 9976033 (Version 1)
Quarter: 2014Q1

REPORT INFORMATION
  Report Type: Spontaneous
  Country: GB (occurrence: GB)
  Receive Date: 20140306
  Receipt Date: 20140306
  Transmission Date: 20141002
  Serious: Yes (Other)
  Sender: FDA-Public Use
  Company Number: GB-ACTAVIS-2014-03593

PATIENT
  Sex: Female

DRUGS (1)
  1. OXALIPLATIN (UNKNOWN) [Suspect]
     Indication: PRODUCT USED FOR UNKNOWN INDICATION
     Dosage: UNK
     Route: 065

REACTIONS (4)
  - Anaphylactoid reaction [Unknown]
  - Dyspnoea [Unknown]
  - Rash [Unknown]
  - Hot flush [Unknown]
